FAERS Safety Report 5649473-7 (Version None)
Quarter: 2008Q1

REPORT INFORMATION
  Report Type: 
  Country: None (occurrence: None)
  Receive Date: 20080304
  Receipt Date: 20080225
  Transmission Date: 20080703
  Serious: Yes (Hospitalization)
  Sender: FDA-Public Use
  Company Number: DE-ABBOTT-08P-062-0439791-00

PATIENT
  Age: 64 Year
  Sex: Female

DRUGS (3)
  1. HUMIRA [Suspect]
     Indication: RHEUMATOID ARTHRITIS
     Route: 058
     Dates: end: 20071001
  2. LEFLUNOMIDE [Concomitant]
     Indication: RHEUMATOID ARTHRITIS
  3. NSAID'S [Concomitant]
     Indication: PAIN

REACTIONS (2)
  - HYSTERECTOMY [None]
  - IMPAIRED HEALING [None]
